FAERS Safety Report 6594756-X (Version None)
Quarter: 2010Q1

REPORT INFORMATION
  Report Type: 
  Country: None (occurrence: None)
  Receive Date: 20100222
  Receipt Date: 20100216
  Transmission Date: 20100710
  Serious: Yes (Hospitalization, Other)
  Sender: FDA-Public Use
  Company Number: US-PFIZER INC-2009311981

PATIENT
  Sex: Male
  Weight: 86.168 kg

DRUGS (2)
  1. CHANTIX [Suspect]
     Indication: SMOKING CESSATION THERAPY
     Dosage: 0.5 MG, 1X/DAY
     Route: 048
     Dates: start: 20091104, end: 20091105
  2. FLUOXETINE HYDROCHLORIDE [Concomitant]
     Indication: DEPRESSION
     Dosage: 20 MG, 1X/DAY

REACTIONS (9)
  - DECREASED APPETITE [None]
  - DISTURBANCE IN ATTENTION [None]
  - DYSPNOEA [None]
  - HALLUCINATION, VISUAL [None]
  - HEART RATE IRREGULAR [None]
  - HYPERVENTILATION [None]
  - INSOMNIA [None]
  - SPEECH DISORDER [None]
  - WEIGHT DECREASED [None]
